FAERS Safety Report 5358942-9 (Version None)
Quarter: 2007Q2

REPORT INFORMATION
  Report Type: 
  Country: None (occurrence: None)
  Receive Date: 20070615
  Receipt Date: 20070607
  Transmission Date: 20071010
  Serious: Yes (Life-Threatening, Hospitalization)
  Sender: FDA-Public Use
  Company Number: B0475227A

PATIENT
  Age: 60 Year
  Sex: Female

DRUGS (6)
  1. AVANDIA [Suspect]
     Route: 065
  2. PLAVIX [Concomitant]
     Route: 065
  3. MAREVAN [Concomitant]
  4. NITRO MACK RETARD [Concomitant]
  5. CONCOR 5 [Concomitant]
  6. UNKNOWN [Concomitant]

REACTIONS (2)
  - PAIN [None]
  - STENT PLACEMENT [None]
